FAERS Safety Report 7490538-5 (Version None)
Quarter: 2011Q2

REPORT INFORMATION
  Report Type: 
  Country: None (occurrence: None)
  Receive Date: 20110512
  Receipt Date: 20110511
  Transmission Date: 20111010
  Serious: Yes (Hospitalization, Other)
  Sender: FDA-Public Use
  Company Number: AUR-APL-2011-01071

PATIENT
  Age: 54 Year
  Sex: Male

DRUGS (7)
  1. WARFARIN SODIUM [Concomitant]
  2. COLCHICINE [Concomitant]
  3. LISINOPRIL [Concomitant]
  4. METOPROLOL TARTRATE [Concomitant]
  5. FERROUS SULFATE TAB [Concomitant]
  6. CEFAZOLIN [Suspect]
     Indication: ANTIBIOTIC PROPHYLAXIS
  7. ASPIRIN [Concomitant]

REACTIONS (13)
  - BLOOD PRESSURE DIASTOLIC DECREASED [None]
  - CONJUNCTIVAL PALLOR [None]
  - HAEMATOCRIT DECREASED [None]
  - CLOSTRIDIUM DIFFICILE COLITIS [None]
  - BLOOD UREA INCREASED [None]
  - GOUT [None]
  - CONDITION AGGRAVATED [None]
  - BLOOD CREATININE INCREASED [None]
  - PSEUDOMEMBRANOUS COLITIS [None]
  - JAUNDICE [None]
  - MUCOSAL DRYNESS [None]
  - BLOOD SODIUM DECREASED [None]
  - BLOOD BILIRUBIN INCREASED [None]
